APPROVED DRUG PRODUCT: ZOLMITRIPTAN
Active Ingredient: ZOLMITRIPTAN
Strength: 2.5MG
Dosage Form/Route: TABLET;ORAL
Application: A204041 | Product #001 | TE Code: AB
Applicant: AJANTA PHARMA LTD
Approved: May 20, 2016 | RLD: No | RS: No | Type: RX